FAERS Safety Report 6613453-5 (Version None)
Quarter: 2010Q1

REPORT INFORMATION
  Report Type: 
  Country: None (occurrence: None)
  Receive Date: 20100225
  Receipt Date: 20100212
  Transmission Date: 20100710
  Serious: Yes (Death)
  Sender: FDA-Public Use
  Company Number: 2008BM000139

PATIENT
  Age: 9 Year
  Sex: Male
  Weight: 18 kg

DRUGS (1)
  1. NAGLAZYME [Suspect]
     Indication: MUCOPOLYSACCHARIDOSIS VI
     Dosage: 1 MG/KG;QW;IVDRP
     Route: 041
     Dates: start: 20080603, end: 20080624

REACTIONS (5)
  - CARDIAC ARREST [None]
  - METABOLIC SYNDROME [None]
  - POOR VENOUS ACCESS [None]
  - PYREXIA [None]
  - RESPIRATORY FAILURE [None]
